FAERS Safety Report 12897980 (Version 1)
Quarter: 2016Q4

REPORT INFORMATION
  Report Type: Spontaneous
  Country: US (occurrence: US)
  Receive Date: 20161028
  Receipt Date: 20161028
  Transmission Date: 20170207
  Serious: No
  Sender: FDA-Public Use
  Company Number: None

PATIENT
  Sex: Male

DRUGS (1)
  1. DOFETILIDE. [Suspect]
     Active Substance: DOFETILIDE
     Route: 048
     Dates: start: 20140123, end: 20161001

REACTIONS (5)
  - Fatigue [None]
  - Balance disorder [None]
  - Amnesia [None]
  - Therapy cessation [None]
  - Headache [None]
